FAERS Safety Report 5598210-3 (Version None)
Quarter: 2008Q1

REPORT INFORMATION
  Report Type: 
  Country: None (occurrence: None)
  Receive Date: 20080122
  Receipt Date: 20080115
  Transmission Date: 20080703
  Serious: Yes (Hospitalization)
  Sender: FDA-Public Use
  Company Number: CN-AVENTIS-200810593GDDC

PATIENT
  Age: 67 Year
  Sex: Female

DRUGS (1)
  1. LANTUS [Suspect]
     Route: 058

REACTIONS (4)
  - ABDOMINAL PAIN UPPER [None]
  - DRY EYE [None]
  - HYPERTENSION [None]
  - VISUAL ACUITY REDUCED [None]
